FAERS Safety Report 15676480 (Version 1)
Quarter: 2018Q4

REPORT INFORMATION
  Report Type: Spontaneous
  Country: US (occurrence: US)
  Receive Date: 20181130
  Receipt Date: 20181130
  Transmission Date: 20190205
  Serious: Yes (Hospitalization)
  Sender: FDA-Public Use
  Company Number: US-ARBOR PHARMACEUTICALS, LLC-US-2018ARB001171

PATIENT
  Sex: Female

DRUGS (2)
  1. EDARBYCLOR [Suspect]
     Active Substance: AZILSARTAN KAMEDOXOMIL\CHLORTHALIDONE
     Indication: HYPERTENSION
     Dosage: 40 MG, UNK
     Route: 048
     Dates: end: 201807
  2. VERAPAMIL [Concomitant]
     Active Substance: VERAPAMIL HYDROCHLORIDE
     Indication: TACHYCARDIA
     Dosage: 180 MG, UNK

REACTIONS (1)
  - Hyponatraemia [Not Recovered/Not Resolved]

NARRATIVE: CASE EVENT DATE: 201806
